FAERS Safety Report 20800329 (Version 5)
Quarter: 2022Q4

REPORT INFORMATION
  Report Type: Spontaneous
  Country: US (occurrence: US)
  Receive Date: 20220509
  Receipt Date: 20221123
  Transmission Date: 20230113
  Serious: No
  Sender: FDA-Public Use
  Company Number: US-GLAXOSMITHKLINE-US2022AMR075006

PATIENT
  Sex: Female

DRUGS (1)
  1. ZEJULA [Suspect]
     Active Substance: NIRAPARIB
     Indication: Ovarian cancer
     Dosage: 200 MG, QD
     Route: 048
     Dates: start: 20210901

REACTIONS (10)
  - Dizziness [Recovered/Resolved]
  - Retinal disorder [Unknown]
  - Vomiting [Not Recovered/Not Resolved]
  - Blood pressure increased [Unknown]
  - Feeling abnormal [Unknown]
  - Eye disorder [Unknown]
  - Hyperhidrosis [Not Recovered/Not Resolved]
  - Decreased activity [Not Recovered/Not Resolved]
  - Abdominal discomfort [Unknown]
  - Product dose omission issue [Recovered/Resolved]

NARRATIVE: CASE EVENT DATE: 20210101
